FAERS Safety Report 11004774 (Version 1)
Quarter: 2015Q2

REPORT INFORMATION
  Report Type: Spontaneous
  Country: CN (occurrence: CN)
  Receive Date: 20150409
  Receipt Date: 20150409
  Transmission Date: 20150821
  Serious: Yes (Other)
  Sender: FDA-Public Use
  Company Number: CN-PFIZER INC-2015116630

PATIENT
  Age: 65 Year
  Sex: Male

DRUGS (1)
  1. SUTENT [Suspect]
     Active Substance: SUNITINIB MALATE
     Indication: RENAL CELL CARCINOMA
     Dosage: UNK

REACTIONS (5)
  - Hepatic function abnormal [Unknown]
  - Gastrointestinal disorder [Unknown]
  - Abdominal distension [Unknown]
  - Renal impairment [Unknown]
  - Myocardial necrosis marker increased [Unknown]
